FAERS Safety Report 14423409 (Version 4)
Quarter: 2018Q3

REPORT INFORMATION
  Report Type: Spontaneous
  Country: US (occurrence: US)
  Receive Date: 20180123
  Receipt Date: 20180713
  Transmission Date: 20181010
  Serious: No
  Sender: FDA-Public Use
  Company Number: US-PFIZER INC-2018029043

PATIENT
  Age: 69 Year
  Sex: Female
  Weight: 79.38 kg

DRUGS (4)
  1. EFFEXOR XR [Suspect]
     Active Substance: VENLAFAXINE HYDROCHLORIDE
     Dosage: 150 MG, UNK (150 MG CAPSULE/QTY 180/DAYS SUPPLY 90 AND 150 MG CAPSULE / QTY 176 / DAYS SUPPLY 88)
  2. EFFEXOR XR [Suspect]
     Active Substance: VENLAFAXINE HYDROCHLORIDE
     Dosage: 225 MG, UNK
  3. EFFEXOR XR [Suspect]
     Active Substance: VENLAFAXINE HYDROCHLORIDE
     Dosage: 300 MG, UNK
  4. EFFEXOR XR [Suspect]
     Active Substance: VENLAFAXINE HYDROCHLORIDE
     Indication: DEPRESSION
     Dosage: 37.5 MG, DAILY

REACTIONS (7)
  - Condition aggravated [Unknown]
  - Weight increased [Unknown]
  - Prescribed overdose [Unknown]
  - Malaise [Unknown]
  - Drug intolerance [Unknown]
  - Withdrawal syndrome [Unknown]
  - Depression [Unknown]
